FAERS Safety Report 7650218-X (Version None)
Quarter: 2011Q3

REPORT INFORMATION
  Report Type: 
  Country: None (occurrence: None)
  Receive Date: 20110802
  Receipt Date: 20110725
  Transmission Date: 20111222
  Serious: Yes (Other)
  Sender: FDA-Public Use
  Company Number: US-ROCHE-785246

PATIENT
  Sex: Male

DRUGS (2)
  1. PEGINTERFERON ALFA-2A [Suspect]
     Indication: HEPATITIS C
     Dosage: LAST DOSE ON WEEK OF JUNE 20 (YEAR UNSPECIFIED)
     Route: 065
     Dates: start: 20110110
  2. RIBAVIRIN [Suspect]
     Indication: HEPATITIS C
     Dosage: DIVIDED DOSES, LAST DOSE ON WEEK OF JUNE 20 (YEAR UNSPECIFIED)
     Route: 065
     Dates: start: 20110110

REACTIONS (3)
  - FATIGUE [None]
  - MASS [None]
  - ALOPECIA [None]
